FAERS Safety Report 7521213-6 (Version None)
Quarter: 2011Q2

REPORT INFORMATION
  Report Type: 
  Country: None (occurrence: None)
  Receive Date: 20110603
  Receipt Date: 20101201
  Transmission Date: 20111010
  Serious: Yes (Other)
  Sender: FDA-Public Use
  Company Number: US-BAYER-2010-000892

PATIENT
  Sex: Female

DRUGS (1)
  1. CIPRO [Suspect]
     Indication: CELLULITIS
     Dosage: 500 MG, BID
     Route: 048

REACTIONS (1)
  - LARYNGEAL CANCER [None]
